FAERS Safety Report 24394431 (Version 1)
Quarter: 2024Q4

REPORT INFORMATION
  Report Type: Spontaneous
  Country: DE (occurrence: DE)
  Receive Date: 20241004
  Receipt Date: 20241004
  Transmission Date: 20250115
  Serious: Yes (Other)
  Sender: BRISTOL MYERS SQUIBB
  Company Number: DE-BRISTOL-MYERS SQUIBB COMPANY-2024-154072

PATIENT
  Age: 37 Year
  Sex: Female

DRUGS (2)
  1. OPDIVO [Suspect]
     Active Substance: NIVOLUMAB
     Indication: Malignant melanoma
     Dosage: DOSE : UNAVAILABLE;     FREQ : UNAVAILABLE
  2. YERVOY [Suspect]
     Active Substance: IPILIMUMAB
     Indication: Malignant melanoma

REACTIONS (1)
  - Blindness [Unknown]
